FAERS Safety Report 5693185-0 (Version None)
Quarter: 2008Q2

REPORT INFORMATION
  Report Type: 
  Country: None (occurrence: None)
  Receive Date: 20080403
  Receipt Date: 20080401
  Transmission Date: 20081010
  Serious: Yes (Other)
  Sender: FDA-Public Use
  Company Number: US-BRISTOL-MYERS SQUIBB COMPANY-14133359

PATIENT
  Sex: Female

DRUGS (3)
  1. GLUCOPHAGE [Suspect]
  2. BYETTA [Concomitant]
  3. ACTOS [Concomitant]

REACTIONS (1)
  - RENAL IMPAIRMENT [None]
